FAERS Safety Report 22596783 (Version 2)
Quarter: 2023Q2

REPORT INFORMATION
  Report Type: Spontaneous
  Country: GR (occurrence: GR)
  Receive Date: 20230613
  Receipt Date: 20230627
  Transmission Date: 20230721
  Serious: Yes (Other)
  Sender: FDA-Public Use
  Company Number: GR-VIANEX-001069

PATIENT
  Age: 42 Year
  Sex: Female

DRUGS (2)
  1. DEXAMETHASONE [Suspect]
     Active Substance: DEXAMETHASONE
     Indication: Hormone replacement therapy
     Route: 065
  2. FLUDROCORTISONE [Concomitant]
     Active Substance: FLUDROCORTISONE
     Indication: Product used for unknown indication
     Route: 065

REACTIONS (3)
  - Hypercalcaemia [Unknown]
  - Cushing^s syndrome [Unknown]
  - Hypothalamic pituitary adrenal axis suppression [Not Recovered/Not Resolved]
